FAERS Safety Report 5823608-5 (Version None)
Quarter: 2008Q3

REPORT INFORMATION
  Report Type: 
  Country: None (occurrence: None)
  Receive Date: 20080725
  Receipt Date: 20080724
  Transmission Date: 20090109
  Serious: Yes (Hospitalization)
  Sender: FDA-Public Use
  Company Number: US-BOEHRINGER INGELHEIM GMBH, GERMANY-2008-BP-11635BP

PATIENT
  Sex: Male

DRUGS (1)
  1. AGGRENOX [Suspect]

REACTIONS (3)
  - CONTUSION [None]
  - KNEE OPERATION [None]
  - PETECHIAE [None]
